FAERS Safety Report 10284131 (Version 1)
Quarter: 2014Q3

REPORT INFORMATION
  Report Type: Spontaneous
  Country: CN (occurrence: None)
  Receive Date: 20140703
  Receipt Date: 20140703
  Transmission Date: 20150326
  Serious: Yes (Hospitalization)
  Sender: FDA-Public Use
  Company Number: B1004464A

PATIENT
  Age: 27 Year
  Sex: Male
  Weight: 56.38 kg

DRUGS (2)
  1. PAROXETINE HYDROCHLORIDE TABLET (PAROXETINE HYDROCHLORIDE) [Suspect]
     Active Substance: PAROXETINE HYDROCHLORIDE
     Indication: ANXIETY
     Dosage: 20 MG/ PER DAY/ ORAL
     Route: 048
     Dates: start: 20130305, end: 20130322
  2. LORAZEPAM. [Concomitant]
     Active Substance: LORAZEPAM

REACTIONS (1)
  - Leukopenia [None]

NARRATIVE: CASE EVENT DATE: 20130320
